FAERS Safety Report 4553406-4 (Version None)
Quarter: 2005Q1

REPORT INFORMATION
  Report Type: 
  Country: None (occurrence: None)
  Receive Date: 20050112
  Receipt Date: 20050106
  Transmission Date: 20050727
  Serious: Yes (Hospitalization)
  Sender: FDA-Public Use
  Company Number: FABR-10948

PATIENT
  Age: 47 Year
  Sex: Male
  Weight: 45 kg

DRUGS (1)
  1. FABRAZYME [Suspect]
     Indication: FABRY'S DISEASE
     Dosage: 45 MG Q2WKS IV
     Route: 042
     Dates: start: 20040609

REACTIONS (6)
  - BLOOD PRESSURE DECREASED [None]
  - BRADYCARDIA [None]
  - CARDIOMEGALY [None]
  - DEPRESSED LEVEL OF CONSCIOUSNESS [None]
  - DRUG HYPERSENSITIVITY [None]
  - ELECTROCARDIOGRAM ABNORMAL [None]
